FAERS Safety Report 20820037 (Version 5)
Quarter: 2022Q2

REPORT INFORMATION
  Report Type: Spontaneous
  Country: CN (occurrence: CN)
  Receive Date: 20220512
  Receipt Date: 20220611
  Transmission Date: 20220721
  Serious: Yes (Hospitalization, Other)
  Sender: FDA-Public Use
  Company Number: CN-NOVARTISPH-NVSC2022CN107013

PATIENT

DRUGS (24)
  1. ENTRESTO [Suspect]
     Active Substance: SACUBITRIL\VALSARTAN
     Indication: Blood aldosterone increased
     Dosage: 50 MG, BID (50MG/TABLET 28TABLETS/BO)
     Route: 048
     Dates: start: 20220411, end: 20220416
  2. ENTRESTO [Suspect]
     Active Substance: SACUBITRIL\VALSARTAN
     Indication: Hypertension
     Dosage: 100 MG, BID (50MG/TABLET 28TABLETS/BO)
     Route: 048
     Dates: start: 20220417, end: 20220424
  3. ENTRESTO [Suspect]
     Active Substance: SACUBITRIL\VALSARTAN
     Dosage: 200 MG, BID (50MG/TABLET 28TABLETS/BO)
     Route: 048
     Dates: start: 20220425, end: 20220501
  4. ENTRESTO [Suspect]
     Active Substance: SACUBITRIL\VALSARTAN
     Dosage: 100 MG, BID (50MG/TABLET 28TABLETS/BO) (100MG-100MG) (8AM/4PM)
     Route: 048
     Dates: start: 20220519, end: 20220529
  5. ENTRESTO [Suspect]
     Active Substance: SACUBITRIL\VALSARTAN
     Dosage: 300 MG (50MG/TABLET 28TABLETS/BOX)
     Route: 048
  6. ENTRESTO [Suspect]
     Active Substance: SACUBITRIL\VALSARTAN
     Dosage: 300 MG, TID (150MG/50MG/100MG, 8AM-4PM-8PM)
     Route: 048
     Dates: start: 20220530, end: 20220605
  7. HYDROCHLOROTHIAZIDE\VALSARTAN [Suspect]
     Active Substance: HYDROCHLOROTHIAZIDE\VALSARTAN
     Indication: Product used for unknown indication
     Dosage: 1 DOSAGE FORM, QD (80MG/12.5MG, 8 AM)
     Route: 048
     Dates: end: 20220410
  8. HYDROCHLOROTHIAZIDE\VALSARTAN [Suspect]
     Active Substance: HYDROCHLOROTHIAZIDE\VALSARTAN
     Dosage: 1 DOSAGE FORM, BID (80MG/12.5MG, 8 AM/4PM)
     Route: 048
     Dates: start: 20220502, end: 20220510
  9. HYDROCHLOROTHIAZIDE\VALSARTAN [Suspect]
     Active Substance: HYDROCHLOROTHIAZIDE\VALSARTAN
     Dosage: 1 DOSAGE FORM, QD (160MG/25MG, 8 AM)
     Route: 048
     Dates: start: 20220511, end: 20220517
  10. HYDROCHLOROTHIAZIDE\VALSARTAN [Suspect]
     Active Substance: HYDROCHLOROTHIAZIDE\VALSARTAN
     Dosage: 100 MG, BID (8 AM/4PM)
     Route: 048
     Dates: start: 20220519
  11. HYDROCHLOROTHIAZIDE\VALSARTAN [Suspect]
     Active Substance: HYDROCHLOROTHIAZIDE\VALSARTAN
     Dosage: 50 MG, 8AM, 4PM
     Route: 048
  12. COMPOUND LIQUORICE [Concomitant]
     Indication: Symptomatic treatment
     Dosage: 3 DOSAGE FORM, TID (8AM, 4PM, 8PM)
     Route: 065
  13. ALBUTEROL SULFATE [Concomitant]
     Active Substance: ALBUTEROL SULFATE
     Indication: Symptomatic treatment
     Dosage: 100 UG, PRN
     Route: 055
  14. BENIDIPINE HYDROCHLORIDE [Concomitant]
     Active Substance: BENIDIPINE HYDROCHLORIDE
     Indication: Product used for unknown indication
     Dosage: 8 MG (4 PM)
     Route: 048
     Dates: start: 20220416
  15. BENIDIPINE HYDROCHLORIDE [Concomitant]
     Active Substance: BENIDIPINE HYDROCHLORIDE
     Dosage: 8 MG (4 PM)
     Route: 048
     Dates: start: 20220411, end: 20220417
  16. BENIDIPINE HYDROCHLORIDE [Concomitant]
     Active Substance: BENIDIPINE HYDROCHLORIDE
     Dosage: 8 MG (4 PM)
     Route: 048
     Dates: start: 20220418, end: 20220424
  17. BENIDIPINE HYDROCHLORIDE [Concomitant]
     Active Substance: BENIDIPINE HYDROCHLORIDE
     Dosage: 8 MG (4 PM)
     Route: 048
     Dates: start: 20220425, end: 20220501
  18. SPIRONOLACTONE [Concomitant]
     Active Substance: SPIRONOLACTONE
     Indication: Product used for unknown indication
     Dosage: 3 DOSAGE FORM, TID (40MG-20MG-20MG 8AM/4PM/8PM)
     Route: 048
     Dates: start: 20220416
  19. SPIRONOLACTONE [Concomitant]
     Active Substance: SPIRONOLACTONE
     Dosage: 3 DOSAGE FORM, TID (40MG-20MG-20MG 8AM/4PM/8PM)
     Route: 048
     Dates: start: 20220411, end: 20220417
  20. SPIRONOLACTONE [Concomitant]
     Active Substance: SPIRONOLACTONE
     Dosage: 3 DOSAGE FORM, TID (40MG-20MG-20MG 8AM/4PM/8PM)
     Route: 048
     Dates: start: 20220418, end: 20220424
  21. SPIRONOLACTONE [Concomitant]
     Active Substance: SPIRONOLACTONE
     Dosage: 3 DOSAGE FORM, TID (40MG-20MG-20MG 8AM/4PM/8PM)
     Route: 048
     Dates: start: 20220425, end: 20220501
  22. SPIRONOLACTONE [Concomitant]
     Active Substance: SPIRONOLACTONE
     Dosage: 20 MG, (40MG-20MG-20MG 8AM/4PM/8PM)
     Route: 048
  23. SPIRONOLACTONE [Concomitant]
     Active Substance: SPIRONOLACTONE
     Dosage: 80 MG, TID (8AM-4PM-8PM)
     Route: 048
  24. IVABRADINE [Concomitant]
     Active Substance: IVABRADINE
     Indication: Product used for unknown indication
     Dosage: 2 DOSAGE FORM, BID (5MG/5MG, 8AM-8P)
     Route: 065
     Dates: start: 20220530, end: 20220605

REACTIONS (7)
  - Blood pressure increased [Recovering/Resolving]
  - Heart rate increased [Recovering/Resolving]
  - Cough [Not Recovered/Not Resolved]
  - Hyponatraemia [Recovering/Resolving]
  - Headache [Recovering/Resolving]
  - Product use in unapproved indication [Unknown]
  - Product use issue [Unknown]

NARRATIVE: CASE EVENT DATE: 20220425
